FAERS Safety Report 8041432-2 (Version None)
Quarter: 2012Q1

REPORT INFORMATION
  Report Type: 
  Country: None (occurrence: None)
  Receive Date: 20120112
  Receipt Date: 20120109
  Transmission Date: 20120608
  Serious: Yes (Other)
  Sender: FDA-Public Use
  Company Number: US-PFIZER INC-2012006346

PATIENT
  Sex: Male
  Weight: 73 kg

DRUGS (8)
  1. DOXAZOSIN [Concomitant]
     Dosage: UNK
  2. ACETYLSALICYLIC ACID [Concomitant]
     Dosage: UNK
  3. WARFARIN [Concomitant]
     Dosage: UNK
  4. PREVACID [Concomitant]
     Dosage: UNK
  5. DILTIAZEM [Concomitant]
     Dosage: UNK
  6. RANITIDINE [Concomitant]
     Indication: GASTRIC DISORDER
     Dosage: UNK
  7. TIKOSYN [Suspect]
     Indication: CARDIAC DISORDER
     Dosage: 250 UG, 2X/DAY
     Route: 048
     Dates: start: 20100801
  8. ATENOLOL [Concomitant]
     Dosage: UNK

REACTIONS (2)
  - MUSCULOSKELETAL DISCOMFORT [None]
  - BACK DISORDER [None]
